FAERS Safety Report 8811272 (Version 1)
Quarter: 2012Q4

REPORT INFORMATION
  Report Type: Spontaneous
  Country: US (occurrence: None)
  Receive Date: 20120925
  Receipt Date: 20120925
  Transmission Date: 20130627
  Serious: Yes (Life-Threatening)
  Sender: FDA-Public Use
  Company Number: None

PATIENT
  Age: 55 Year
  Sex: Female
  Weight: 88 kg

DRUGS (2)
  1. TIZANIDINE [Suspect]
     Indication: MUSCLE SPASM
     Dates: start: 20120714
  2. TIZANIDINE [Suspect]
     Indication: MUSCLE SPASM
     Dates: start: 20110726

REACTIONS (6)
  - Heart rate increased [None]
  - Chest pain [None]
  - Blood urine present [None]
  - Haematochezia [None]
  - Dizziness [None]
  - Swelling face [None]
